FAERS Safety Report 8218710-7 (Version None)
Quarter: 2012Q1

REPORT INFORMATION
  Report Type: 
  Country: None (occurrence: None)
  Receive Date: 20120319
  Receipt Date: 20120309
  Transmission Date: 20120608
  Serious: Yes (Other)
  Sender: FDA-Public Use
  Company Number: PHHY2011CA108605

PATIENT
  Sex: Female

DRUGS (2)
  1. GILENYA [Suspect]
     Dosage: 0.5 MG, DAILY
     Route: 048
     Dates: start: 20120207, end: 20120306
  2. GILENYA [Suspect]
     Indication: RELAPSING-REMITTING MULTIPLE SCLEROSIS
     Dosage: 0.5 MG, QD
     Route: 048
     Dates: start: 20111114, end: 20111212

REACTIONS (12)
  - PYELONEPHRITIS ACUTE [None]
  - GAIT DISTURBANCE [None]
  - HYPOAESTHESIA [None]
  - OROPHARYNGEAL PAIN [None]
  - URINARY TRACT INFECTION [None]
  - KIDNEY INFECTION [None]
  - HEADACHE [None]
  - CHILLS [None]
  - TREMOR [None]
  - EYE PAIN [None]
  - VOMITING [None]
  - FATIGUE [None]
